FAERS Safety Report 9402657 (Version 1)
Quarter: 2013Q3

REPORT INFORMATION
  Report Type: Spontaneous
  Country: MX (occurrence: MX)
  Receive Date: 20130716
  Receipt Date: 20130716
  Transmission Date: 20140515
  Serious: Yes (Other)
  Sender: FDA-Public Use
  Company Number: MX-AMGEN-MEXSP2013049040

PATIENT
  Age: 72 Year
  Sex: Female

DRUGS (1)
  1. PROLIA [Suspect]
     Indication: PRODUCT USED FOR UNKNOWN INDICATION
     Dosage: 60 MG/ML, UNK

REACTIONS (4)
  - Hernia [Recovering/Resolving]
  - Nervous system disorder [Unknown]
  - Cardiovascular disorder [Unknown]
  - Vaginal inflammation [Recovering/Resolving]
